FAERS Safety Report 8200926-7 (Version None)
Quarter: 2012Q1

REPORT INFORMATION
  Report Type: 
  Country: None (occurrence: None)
  Receive Date: 20120312
  Receipt Date: 20110929
  Transmission Date: 20120608
  Serious: No
  Sender: FDA-Public Use
  Company Number: US-ABBOTT-11P-163-0859884-00

PATIENT
  Sex: Female
  Weight: 61.29 kg

DRUGS (2)
  1. HYDROCODONE BITARTRATE [Concomitant]
     Indication: PELVIC PAIN
     Dates: start: 20110801
  2. LUPRON DEPOT [Suspect]
     Indication: PELVIC PAIN
     Dates: start: 20110801

REACTIONS (1)
  - PELVIC PAIN [None]
